FAERS Safety Report 19549013 (Version 2)
Quarter: 2021Q3

REPORT INFORMATION
  Report Type: Other
  Country: US (occurrence: US)
  Receive Date: 20210715
  Receipt Date: 20210812
  Transmission Date: 20211014
  Serious: No
  Sender: FDA-Public Use
  Company Number: US-NEUROCRINE BIOSCIENCES INC.-2021NBI03655

PATIENT

DRUGS (22)
  1. ATORVASTATIN [Concomitant]
     Active Substance: ATORVASTATIN
     Dosage: UNK
  2. CALCIUM [Concomitant]
     Active Substance: CALCIUM
     Dosage: UNK
  3. CETIRIZINE [Concomitant]
     Active Substance: CETIRIZINE HYDROCHLORIDE
     Dosage: UNK
  4. CYCLOBENZAPRINE. [Concomitant]
     Active Substance: CYCLOBENZAPRINE
     Dosage: UNK
  5. LOSARTAN. [Concomitant]
     Active Substance: LOSARTAN
     Dosage: UNK
  6. METOPROLOL. [Concomitant]
     Active Substance: METOPROLOL
     Dosage: UNK
  7. PYRIDIUM [Concomitant]
     Active Substance: PHENAZOPYRIDINE
     Dosage: UNK
  8. ASPIRIN. [Concomitant]
     Active Substance: ASPIRIN
     Dosage: UNK
  9. LINZESS [Concomitant]
     Active Substance: LINACLOTIDE
     Dosage: UNK
  10. METFORMIN [Concomitant]
     Active Substance: METFORMIN HYDROCHLORIDE
     Dosage: UNK
  11. NAPROXEN. [Concomitant]
     Active Substance: NAPROXEN
     Dosage: UNK
  12. COMBIGAN D [Concomitant]
     Dosage: UNK
  13. INGREZZA [Suspect]
     Active Substance: VALBENAZINE
     Indication: TARDIVE DYSKINESIA
     Dosage: 40 MILLIGRAM, QD
     Route: 048
     Dates: start: 2018
  14. MULTIVITAMINS [VITAMINS NOS] [Concomitant]
     Active Substance: VITAMINS
     Dosage: UNK
  15. NITROSTAT [Concomitant]
     Active Substance: NITROGLYCERIN
     Dosage: UNK
  16. MACROBID [CLARITHROMYCIN] [Concomitant]
     Active Substance: CLARITHROMYCIN
     Dosage: UNK
  17. AMANTADINE HCL [Concomitant]
     Active Substance: AMANTADINE HYDROCHLORIDE
     Dosage: UNK
  18. CLOPIDOGREL [Concomitant]
     Active Substance: CLOPIDOGREL BISULFATE
     Dosage: UNK
  19. LEVOTHYROXINE. [Concomitant]
     Active Substance: LEVOTHYROXINE
     Dosage: UNK
  20. TRAVATAN [Concomitant]
     Active Substance: TRAVOPROST
     Dosage: UNK
  21. INGREZZA [Suspect]
     Active Substance: VALBENAZINE
     Dosage: 60 MILLIGRAM, QD
     Route: 048
  22. DEXILANT [Concomitant]
     Active Substance: DEXLANSOPRAZOLE
     Dosage: UNK

REACTIONS (1)
  - Tardive dyskinesia [Recovered/Resolved]
